FAERS Safety Report 4986629-0 (Version None)
Quarter: 2006Q2

REPORT INFORMATION
  Report Type: 
  Country: None (occurrence: None)
  Receive Date: 20060428
  Receipt Date: 20060419
  Transmission Date: 20061013
  Serious: Yes (Other)
  Sender: FDA-Public Use
  Company Number: PHBS2006SE05660

PATIENT
  Sex: Male

DRUGS (4)
  1. ZOMETA [Suspect]
     Indication: MULTIPLE MYELOMA
     Route: 065
     Dates: start: 20020801
  2. VELBE [Concomitant]
     Route: 065
  3. DAONIL [Concomitant]
     Route: 065
  4. GLIBENKLAMID [Concomitant]
     Route: 065

REACTIONS (1)
  - OSTEONECROSIS [None]
